FAERS Safety Report 6193536-7 (Version None)
Quarter: 2009Q2

REPORT INFORMATION
  Report Type: 
  Country: None (occurrence: None)
  Receive Date: 20090514
  Receipt Date: 20090512
  Transmission Date: 20091009
  Serious: Yes (Life-Threatening)
  Sender: FDA-Public Use
  Company Number: 2009SP010037

PATIENT
  Age: 83 Year
  Sex: Female
  Weight: 75 kg

DRUGS (2)
  1. TEMODAL [Suspect]
     Indication: MALIGNANT GLIOMA
     Dosage: 360 MG;QD;PO
     Route: 048
     Dates: start: 20090312, end: 20090316
  2. TEMODAL [Suspect]
     Indication: MALIGNANT GLIOMA
     Dosage: 360 MG;QD;PO
     Route: 048
     Dates: start: 20081215

REACTIONS (3)
  - ESCHERICHIA URINARY TRACT INFECTION [None]
  - FEBRILE BONE MARROW APLASIA [None]
  - SEPTIC SHOCK [None]
